FAERS Safety Report 10397917 (Version 1)
Quarter: 2014Q3

REPORT INFORMATION
  Report Type: Spontaneous
  Country: US (occurrence: US)
  Receive Date: 20140821
  Receipt Date: 20140821
  Transmission Date: 20150326
  Serious: No
  Sender: FDA-Public Use
  Company Number: US-BIOGENIDEC-2014BI082330

PATIENT
  Sex: Male

DRUGS (7)
  1. REBIF [Concomitant]
     Active Substance: INTERFERON BETA-1A
  2. AVONEX [Concomitant]
     Active Substance: INTERFERON BETA-1A
     Indication: MULTIPLE SCLEROSIS
     Route: 030
  3. COPAXONE [Concomitant]
     Active Substance: GLATIRAMER ACETATE
  4. TECFIDERA [Suspect]
     Active Substance: DIMETHYL FUMARATE
     Indication: MULTIPLE SCLEROSIS
  5. TYSABRI [Concomitant]
     Active Substance: NATALIZUMAB
     Route: 042
  6. BETASERON [Concomitant]
     Active Substance: INTERFERON BETA-1B
  7. AVONEX [Concomitant]
     Active Substance: INTERFERON BETA-1A
     Indication: MULTIPLE SCLEROSIS
     Route: 030

REACTIONS (6)
  - Gastric disorder [Unknown]
  - Ulcer [Unknown]
  - Rheumatoid arthritis [Unknown]
  - Joint lock [Unknown]
  - Hand-eye coordination impaired [Unknown]
  - Appendicectomy [Unknown]

NARRATIVE: CASE EVENT DATE: 201308
